FAERS Safety Report 15056845 (Version 1)
Quarter: 2018Q2

REPORT INFORMATION
  Report Type: Spontaneous
  Country: US (occurrence: US)
  Receive Date: 20180604
  Receipt Date: 20180604
  Transmission Date: 20180711
  Serious: Yes (Hospitalization, Other)
  Sender: FDA-Public Use
  Company Number: None

PATIENT
  Age: 57 Year
  Sex: Female
  Weight: 69.3 kg

DRUGS (8)
  1. MELATONIN [Concomitant]
     Active Substance: MELATONIN
     Dates: start: 20180601
  2. EMPAGLIFLOZIN [Suspect]
     Active Substance: EMPAGLIFLOZIN
     Indication: TYPE 2 DIABETES MELLITUS
     Route: 048
     Dates: start: 20160127, end: 20180601
  3. ROSUVASTATIN. [Concomitant]
     Active Substance: ROSUVASTATIN
     Dates: start: 20070821
  4. NORTIPTYLLINE [Concomitant]
     Dates: start: 20161227
  5. OZEMPIC [Suspect]
     Active Substance: SEMAGLUTIDE
     Indication: TYPE 2 DIABETES MELLITUS
     Route: 058
     Dates: start: 20180508, end: 20180601
  6. ASPART (NOVOLOG) [Concomitant]
     Dates: start: 20101201
  7. PROZAC [Concomitant]
     Active Substance: FLUOXETINE HYDROCHLORIDE
     Dates: start: 20041104
  8. OMEPRAZOLE. [Concomitant]
     Active Substance: OMEPRAZOLE
     Dates: start: 20130807

REACTIONS (3)
  - Lactic acidosis [None]
  - Diabetic ketoacidosis [None]
  - Acute myocardial infarction [None]

NARRATIVE: CASE EVENT DATE: 20180601
